FAERS Safety Report 8774619 (Version 1)
Quarter: 2012Q4

REPORT INFORMATION
  Report Type: 
  Country: BR (occurrence: BR)
  Receive Date: 20120907
  Receipt Date: 20120907
  Transmission Date: 20130627
  Serious: Yes (Hospitalization)
  Sender: FDA-Public Use
  Company Number: BR-BRISTOL-MYERS SQUIBB COMPANY-16917593

PATIENT
  Age: 66 Year
  Sex: Female
  Weight: 71 kg

DRUGS (2)
  1. ONGLYZA TABS 2.5 MG [Suspect]
     Indication: DIABETES MELLITUS
     Dosage: 1 df = 1 tab,3 months ago
     Route: 048
     Dates: start: 2012
  2. OMEPRAZOLE [Concomitant]

REACTIONS (1)
  - Ankle fracture [Recovering/Resolving]
